FAERS Safety Report 5513441-6 (Version None)
Quarter: 2007Q4

REPORT INFORMATION
  Report Type: 
  Country: None (occurrence: None)
  Receive Date: 20071112
  Receipt Date: 20071026
  Transmission Date: 20080405
  Serious: Yes (Other)
  Sender: FDA-Public Use
  Company Number: AU-PFIZER INC-2007085412

PATIENT
  Sex: Female
  Weight: 77 kg

DRUGS (6)
  1. LIPITOR [Suspect]
     Indication: HYPERCHOLESTEROLAEMIA
     Route: 048
  2. CADUET [Suspect]
     Indication: HYPERCHOLESTEROLAEMIA
     Dosage: TEXT:5MG/40MG
     Route: 048
  3. NORVASC [Concomitant]
     Indication: HYPERTENSION
     Route: 048
     Dates: start: 20070707
  4. KARVEA HCT [Concomitant]
     Indication: HYPERTENSION
     Dosage: TEXT:300MG/12.5MG
     Route: 048
  5. ACETYLSALICYLIC ACID SRT [Concomitant]
  6. ASMOL [Concomitant]
     Indication: ASTHMA
     Dosage: TEXT:2 PUFFS-FREQ:PRN
     Route: 055

REACTIONS (6)
  - ABDOMINAL PAIN UPPER [None]
  - ALANINE AMINOTRANSFERASE INCREASED [None]
  - BLOOD CREATINE PHOSPHOKINASE INCREASED [None]
  - BLOOD IRON DECREASED [None]
  - HEPATITIS [None]
  - RENAL CYST [None]
